FAERS Safety Report 6649127-4 (Version None)
Quarter: 2010Q1

REPORT INFORMATION
  Report Type: 
  Country: None (occurrence: None)
  Receive Date: 20100324
  Receipt Date: 20100318
  Transmission Date: 20100710
  Serious: Yes (Hospitalization, Other)
  Sender: FDA-Public Use
  Company Number: GB-SANOFI-AVENTIS-2010SA015980

PATIENT
  Age: 70 Year
  Sex: Male

DRUGS (9)
  1. INSULIN GLARGINE [Suspect]
     Dates: start: 20040311, end: 20090731
  2. OPTIPEN [Suspect]
     Route: 058
  3. BLINDED THERAPY [Suspect]
     Dosage: 1 CAPSULE
     Dates: start: 20040311, end: 20091119
  4. SIMVASTATIN [Concomitant]
  5. DIPYRIDAMOLE [Concomitant]
     Indication: HYPERTENSION
  6. BISOPROLOL [Concomitant]
     Indication: HYPERTENSION
  7. QUINAPRIL [Concomitant]
     Indication: HYPERTENSION
  8. DOXAZOSIN [Concomitant]
  9. ASPIRIN [Concomitant]
     Indication: PROPHYLAXIS

REACTIONS (1)
  - RECTOSIGMOID CANCER STAGE III [None]
